FAERS Safety Report 4585139-2 (Version None)
Quarter: 2005Q1

REPORT INFORMATION
  Report Type: 
  Country: None (occurrence: None)
  Receive Date: 20050217
  Receipt Date: 20050110
  Transmission Date: 20050727
  Serious: No
  Sender: FDA-Public Use
  Company Number: US-GLAXOSMITHKLINE-A0540062A

PATIENT
  Sex: Female

DRUGS (3)
  1. WELLBUTRIN XL [Suspect]
     Indication: ILL-DEFINED DISORDER
     Route: 048
  2. EFFEXOR [Concomitant]
  3. WELLBUTRIN SR [Concomitant]

REACTIONS (3)
  - FEELING JITTERY [None]
  - HYPERHIDROSIS [None]
  - NERVOUSNESS [None]
